FAERS Safety Report 5150668-X (Version None)
Quarter: 2006Q4

REPORT INFORMATION
  Report Type: 
  Country: None (occurrence: None)
  Receive Date: 20061114
  Receipt Date: 20060912
  Transmission Date: 20070319
  Serious: Yes (Other)
  Sender: FDA-Public Use
  Company Number: BE-AVENTIS-200614826EU

PATIENT
  Age: 93 Year
  Sex: Female
  Weight: 50 kg

DRUGS (5)
  1. CLEXANE [Suspect]
     Indication: PHLEBITIS
     Route: 058
  2. CLEXANE [Suspect]
     Indication: PROPHYLAXIS
     Route: 058
  3. CLEXANE [Suspect]
     Route: 058
     Dates: end: 20060910
  4. AGGRENOX [Concomitant]
     Route: 048
  5. AGGRENOX [Concomitant]
     Route: 048

REACTIONS (3)
  - HAEMATOMA [None]
  - OPEN WOUND [None]
  - PEMPHIGOID [None]
